FAERS Safety Report 24772147 (Version 2)
Quarter: 2025Q1

REPORT INFORMATION
  Report Type: Spontaneous
  Country: US (occurrence: US)
  Receive Date: 20241224
  Receipt Date: 20250301
  Transmission Date: 20250409
  Serious: No
  Sender: SANOFI AVENTIS
  Company Number: US-SA-2024SA377673

PATIENT
  Age: 3 Year
  Sex: Male

DRUGS (1)
  1. DUPIXENT [Suspect]
     Active Substance: DUPILUMAB
     Indication: Eczema
     Dosage: 300 MG, Q4W
     Route: 058
     Dates: start: 2024

REACTIONS (7)
  - Upper limb fracture [Unknown]
  - Eczema [Recovered/Resolved]
  - Pruritus [Recovered/Resolved]
  - Rash erythematous [Unknown]
  - Therapeutic response shortened [Unknown]
  - Therapeutic response decreased [Unknown]
  - Inappropriate schedule of product administration [Unknown]

NARRATIVE: CASE EVENT DATE: 20240101
